FAERS Safety Report 6056806-9 (Version None)
Quarter: 2009Q1

REPORT INFORMATION
  Report Type: 
  Country: None (occurrence: None)
  Receive Date: 20090126
  Receipt Date: 20090126
  Transmission Date: 20090719
  Serious: No
  Sender: FDA-Public Use
  Company Number: None

PATIENT
  Age: 23 Year
  Sex: Female
  Weight: 65.7716 kg

DRUGS (2)
  1. PREDNISONE TAB [Suspect]
     Indication: ASTHMA
     Dosage: 60 MG EVERY 6 HOURS IV BOLUS
     Route: 040
     Dates: start: 20020917, end: 20021028
  2. PREDNISONE TAB [Suspect]
     Indication: ASTHMA
     Dosage: 60 MG EVERY 6 HOURS IV BOLUS
     Route: 040
     Dates: start: 20031128, end: 20031224

REACTIONS (6)
  - ANXIETY [None]
  - BONE DISORDER [None]
  - GAIT DISTURBANCE [None]
  - JOB DISSATISFACTION [None]
  - OSTEONECROSIS [None]
  - PAIN [None]
